FAERS Safety Report 21536025 (Version 4)
Quarter: 2022Q4

REPORT INFORMATION
  Report Type: Spontaneous
  Country: US (occurrence: US)
  Receive Date: 20221101
  Receipt Date: 20221130
  Transmission Date: 20230113
  Serious: No
  Sender: FDA-Public Use
  Company Number: US-UNITED THERAPEUTICS-UNT-2022-021090

PATIENT
  Sex: Male

DRUGS (9)
  1. TYVASO [Suspect]
     Active Substance: TREPROSTINIL
     Indication: Pulmonary arterial hypertension
     Dosage: UNK
     Dates: start: 20220901
  2. TYVASO [Suspect]
     Active Substance: TREPROSTINIL
     Dosage: 18 ?G, QID
     Dates: start: 202209
  3. TYVASO [Suspect]
     Active Substance: TREPROSTINIL
     Dosage: 18 ?G, QID
     Dates: start: 202209
  4. TYVASO [Suspect]
     Active Substance: TREPROSTINIL
     Dosage: 24 ?G, QID
     Dates: start: 202209
  5. TYVASO [Suspect]
     Active Substance: TREPROSTINIL
     Dosage: 30 ?G, QID
     Dates: start: 2022
  6. TYVASO [Suspect]
     Active Substance: TREPROSTINIL
     Dosage: 48 ?G, QID
     Dates: start: 2022
  7. TYVASO [Suspect]
     Active Substance: TREPROSTINIL
     Dosage: 54 ?G, QID
     Dates: start: 20221029
  8. TYVASO [Suspect]
     Active Substance: TREPROSTINIL
     Dosage: 48 ?G, QID
     Dates: start: 202210, end: 2022
  9. TYVASO [Suspect]
     Active Substance: TREPROSTINIL
     Dosage: 42 ?G, QID
     Dates: start: 2022

REACTIONS (19)
  - Choking sensation [Unknown]
  - Palpitations [Unknown]
  - Dyspnoea [Unknown]
  - Oxygen saturation decreased [Unknown]
  - Cough [Recovering/Resolving]
  - Throat irritation [Unknown]
  - Respiratory rate increased [Unknown]
  - Somnolence [Unknown]
  - Fatigue [Unknown]
  - Depression [Unknown]
  - Rash pruritic [Unknown]
  - Skin burning sensation [Unknown]
  - Tachycardia [Recovering/Resolving]
  - Nausea [Recovered/Resolved]
  - Pulmonary pain [Unknown]
  - Nasal congestion [Unknown]
  - Chest pain [Recovered/Resolved]
  - Treatment noncompliance [Unknown]
  - Device operational issue [Unknown]

NARRATIVE: CASE EVENT DATE: 20220101
